FAERS Safety Report 19949449 (Version 10)
Quarter: 2024Q2

REPORT INFORMATION
  Report Type: Spontaneous
  Country: US (occurrence: US)
  Receive Date: 20211013
  Receipt Date: 20240527
  Transmission Date: 20240715
  Serious: Yes (Hospitalization, Disabling, Other)
  Sender: FDA-Public Use
  Company Number: US-ORGANON-O2110USA000855

PATIENT
  Sex: Female
  Weight: 111 kg

DRUGS (3)
  1. SINGULAIR [Suspect]
     Active Substance: MONTELUKAST SODIUM
     Indication: Asthma
     Dosage: TAKE 10 MG BY MOUTH ONCE A DAY
     Route: 048
     Dates: start: 1998, end: 2012
  2. SINGULAIR [Suspect]
     Active Substance: MONTELUKAST SODIUM
     Dosage: 10 MILLIGRAM, QD (30 TABLETS)
     Route: 048
     Dates: start: 20180717
  3. SINGULAIR [Suspect]
     Active Substance: MONTELUKAST SODIUM
     Dosage: 10 MILLIGRAM, QD
     Route: 048
     Dates: start: 20190322

REACTIONS (55)
  - Mental disorder [Unknown]
  - Major depression [Not Recovered/Not Resolved]
  - Neuropsychological symptoms [Not Recovered/Not Resolved]
  - Bipolar disorder [Unknown]
  - Suicide attempt [Unknown]
  - Suicide attempt [Unknown]
  - Bipolar I disorder [Unknown]
  - Bipolar II disorder [Unknown]
  - Schizoaffective disorder [Unknown]
  - Hallucination, auditory [Not Recovered/Not Resolved]
  - Suicidal ideation [Not Recovered/Not Resolved]
  - Craniocerebral injury [Unknown]
  - Hypothyroidism [Unknown]
  - Borderline personality disorder [Unknown]
  - Panic disorder [Unknown]
  - Obsessive-compulsive disorder [Unknown]
  - Post-traumatic stress disorder [Unknown]
  - Anxiety disorder [Unknown]
  - Insomnia [Unknown]
  - Migraine [Not Recovered/Not Resolved]
  - Renal disorder [Not Recovered/Not Resolved]
  - Thyroid disorder [Not Recovered/Not Resolved]
  - Urinary tract infection [Not Recovered/Not Resolved]
  - Headache [Not Recovered/Not Resolved]
  - Obesity [Unknown]
  - Seasonal allergy [Unknown]
  - Endometriosis [Unknown]
  - Pain [Unknown]
  - Myofascial pain syndrome [Unknown]
  - Glucose tolerance impaired [Unknown]
  - Skin candida [Unknown]
  - Mania [Unknown]
  - Obsessive-compulsive disorder [Unknown]
  - Depressed mood [Unknown]
  - Sleep disorder [Unknown]
  - Memory impairment [Unknown]
  - Appetite disorder [Unknown]
  - Anhedonia [Unknown]
  - Feeling of despair [Unknown]
  - Disturbance in attention [Unknown]
  - Feeling abnormal [Unknown]
  - Fatigue [Unknown]
  - Tachyphrenia [Unknown]
  - Impulsive behaviour [Unknown]
  - Abnormal behaviour [Unknown]
  - Irritability [Unknown]
  - Crying [Unknown]
  - Anxiety [Unknown]
  - Paranoia [Unknown]
  - Sinusitis [Unknown]
  - Rhinitis [Unknown]
  - Fibromyalgia [Unknown]
  - Nasal congestion [Unknown]
  - Neck pain [Unknown]
  - Hypoaesthesia [Unknown]

NARRATIVE: CASE EVENT DATE: 20000101
